FAERS Safety Report 23896425 (Version 1)
Quarter: 2024Q2

REPORT INFORMATION
  Report Type: Report from Study
  Country: ES (occurrence: ES)
  Receive Date: 20240524
  Receipt Date: 20240524
  Transmission Date: 20240716
  Serious: Yes (Hospitalization)
  Sender: FDA-Public Use
  Company Number: None

PATIENT
  Age: 74 Year
  Sex: Male

DRUGS (2)
  1. OXALIPLATIN [Suspect]
     Active Substance: OXALIPLATIN
     Indication: Colon cancer stage IV
     Dosage: HAS RECEIVED 4 CYCLES, OXALIPLATIN (7351A)
     Route: 065
     Dates: start: 20220401, end: 20220529
  2. RALTITREXED [Suspect]
     Active Substance: RALTITREXED
     Indication: Colon cancer stage IV
     Dosage: HAS RECEIVED 4 CYCLES
     Route: 065
     Dates: start: 20220401, end: 20220529

REACTIONS (3)
  - Pancytopenia [Recovering/Resolving]
  - Neutropenia [Recovering/Resolving]
  - Diarrhoea [Recovering/Resolving]

NARRATIVE: CASE EVENT DATE: 20220529
